FAERS Safety Report 6937002-7 (Version None)
Quarter: 2010Q3

REPORT INFORMATION
  Report Type: 
  Country: None (occurrence: None)
  Receive Date: 20100823
  Receipt Date: 20100809
  Transmission Date: 20110219
  Serious: Yes (Other)
  Sender: FDA-Public Use
  Company Number: PHHY2010BR53071

PATIENT
  Age: 61 Year
  Sex: Male

DRUGS (1)
  1. RASILEZ HCT [Suspect]

REACTIONS (4)
  - DRUG DOSE OMISSION [None]
  - HYPERTENSION [None]
  - INFARCTION [None]
  - PHLEBECTOMY [None]
